FAERS Safety Report 8801387 (Version 1)
Quarter: 2012Q4

REPORT INFORMATION
  Report Type: 
  Country: IT (occurrence: IT)
  Receive Date: 20120921
  Receipt Date: 20120921
  Transmission Date: 20130627
  Serious: Yes (Hospitalization)
  Sender: FDA-Public Use
  Company Number: IT-PFIZER INC-2012231893

PATIENT
  Age: 45 Year
  Sex: Male

DRUGS (1)
  1. VIAGRA [Suspect]
     Dosage: 3-4 tablets 100 mg
     Dates: start: 2011

REACTIONS (1)
  - Fracture of penis [Recovered/Resolved]
